FAERS Safety Report 12664067 (Version 1)
Quarter: 2016Q3

REPORT INFORMATION
  Report Type: Spontaneous
  Country: US (occurrence: US)
  Receive Date: 20160818
  Receipt Date: 20160818
  Transmission Date: 20161109
  Serious: No
  Sender: FDA-Public Use
  Company Number: US-GLAXOSMITHKLINE-CHPA2016US002693

PATIENT

DRUGS (1)
  1. TRANSDERM SCOP [Suspect]
     Active Substance: SCOPOLAMINE
     Indication: PRODUCT USED FOR UNKNOWN INDICATION
     Dosage: UNK
     Route: 062

REACTIONS (8)
  - Dizziness [Unknown]
  - Vomiting [Unknown]
  - Malaise [Unknown]
  - Dry throat [Unknown]
  - Nausea [Unknown]
  - Withdrawal syndrome [Unknown]
  - Dry eye [Unknown]
  - Dry mouth [Unknown]
